FAERS Safety Report 7425872-8 (Version None)
Quarter: 2011Q2

REPORT INFORMATION
  Report Type: 
  Country: None (occurrence: None)
  Receive Date: 20110420
  Receipt Date: 20110411
  Transmission Date: 20111010
  Serious: Yes (Hospitalization)
  Sender: FDA-Public Use
  Company Number: FR-ASTRAZENECA-2011SE21943

PATIENT
  Age: 31813 Day
  Sex: Female

DRUGS (15)
  1. FORLAX [Concomitant]
     Route: 048
  2. NOVORAPID [Concomitant]
  3. LANTUS [Concomitant]
  4. FASLODEX [Suspect]
     Route: 030
  5. FASLODEX [Suspect]
     Route: 030
  6. COTAREG [Concomitant]
     Dosage: 80/12.5 1 DF DAILY
     Route: 048
  7. ACETAMINOPHEN [Concomitant]
     Route: 048
  8. NORMACOL [Concomitant]
  9. NEXIUM [Concomitant]
     Route: 048
  10. FASLODEX [Suspect]
     Indication: BREAST CANCER
     Route: 030
     Dates: start: 20110127
  11. UVEDOSE [Concomitant]
     Dosage: 2.5/2 ML 1 DF EVERY OTHER DAY
     Route: 048
  12. MOTILIUM [Concomitant]
     Route: 048
  13. DIFFU K [Concomitant]
  14. LOVENOX [Concomitant]
  15. EDUCTYL [Concomitant]
     Route: 054

REACTIONS (1)
  - SUBILEUS [None]
